FAERS Safety Report 10064402 (Version 2)
Quarter: 2014Q2

REPORT INFORMATION
  Report Type: Spontaneous
  Country: US (occurrence: US)
  Receive Date: 20140408
  Receipt Date: 20140408
  Transmission Date: 20141212
  Serious: No
  Sender: FDA-Public Use
  Company Number: US-BAYER-2014-036637

PATIENT
  Age: 52 Year
  Sex: Female

DRUGS (1)
  1. MIRENA [Suspect]
     Dosage: 20 MCG/24HR, CONT
     Route: 015
     Dates: start: 201401

REACTIONS (5)
  - Therapeutic response changed [None]
  - Therapeutic response changed [None]
  - Amenorrhoea [None]
  - Menopause delayed [None]
  - Therapeutic response changed [None]
